FAERS Safety Report 7723193-7 (Version None)
Quarter: 2011Q3

REPORT INFORMATION
  Report Type: 
  Country: None (occurrence: None)
  Receive Date: 20110901
  Receipt Date: 20110824
  Transmission Date: 20111222
  Serious: Yes (Other)
  Sender: FDA-Public Use
  Company Number: MX-UCBSA-039914

PATIENT
  Sex: Female
  Weight: 69 kg

DRUGS (5)
  1. TOTELLE [Concomitant]
     Indication: MENOPAUSE
     Dosage: 1/0.125MG PER DAY
     Route: 048
     Dates: start: 20100101
  2. TEGRETOL [Concomitant]
     Indication: EPILEPSY
     Route: 048
     Dates: start: 20000101
  3. PHENYTOIN SODIUM CAP [Concomitant]
  4. VIMPAT [Suspect]
     Indication: EPILEPSY
     Route: 048
     Dates: start: 20110601, end: 20110701
  5. VIMPAT [Suspect]
     Route: 048
     Dates: start: 20110701, end: 20110803

REACTIONS (4)
  - SOMNOLENCE [None]
  - DYSLALIA [None]
  - ASTHENIA [None]
  - HEADACHE [None]
